FAERS Safety Report 5270765-8 (Version None)
Quarter: 2007Q1

REPORT INFORMATION
  Report Type: 
  Country: None (occurrence: None)
  Receive Date: 20070319
  Receipt Date: 20070319
  Transmission Date: 20070707
  Serious: No
  Sender: FDA-Public Use
  Company Number: None

PATIENT
  Age: 64 Year
  Sex: Female
  Weight: 62.5964 kg

DRUGS (1)
  1. GABAPENTIN [Suspect]
     Dosage: 600MG  2 TID
     Dates: start: 20050203

REACTIONS (5)
  - BURNING SENSATION [None]
  - CONDITION AGGRAVATED [None]
  - EAR PAIN [None]
  - EYE IRRITATION [None]
  - PHARMACEUTICAL PRODUCT COMPLAINT [None]
